FAERS Safety Report 8785928 (Version 2)
Quarter: 2012Q4

REPORT INFORMATION
  Report Type: 
  Country: US (occurrence: US)
  Receive Date: 20120914
  Receipt Date: 20121022
  Transmission Date: 20130627
  Serious: Yes (Death, Hospitalization)
  Sender: FDA-Public Use
  Company Number: PHEH2012US017851

PATIENT
  Age: 51 Year
  Sex: Female
  Weight: 69 kg

DRUGS (5)
  1. MYFORTIC [Suspect]
     Indication: RENAL TRANSPLANT
     Dosage: UNK UKN, UNK
     Route: 048
     Dates: start: 20061116, end: 20100920
  2. MYFORTIC [Suspect]
     Dosage: 360 mg, BID
     Route: 048
     Dates: start: 20100920
  3. BELATACEPT [Concomitant]
     Indication: PROPHYLAXIS AGAINST TRANSPLANT REJECTION
     Dosage: 375 mg, monthly
     Route: 042
     Dates: start: 20100222
  4. PREDNISONE [Concomitant]
     Indication: PROPHYLAXIS AGAINST TRANSPLANT REJECTION
     Dosage: 5 mg,daily
     Route: 048
     Dates: start: 20090728
  5. LABETALOL [Concomitant]
     Dosage: 300 mg / 200 mg
     Route: 048
     Dates: start: 20090526

REACTIONS (3)
  - Chronic allograft nephropathy [Fatal]
  - Blood creatine increased [Fatal]
  - Haemoglobin decreased [Unknown]
